FAERS Safety Report 6383763-8 (Version None)
Quarter: 2009Q4

REPORT INFORMATION
  Report Type: 
  Country: None (occurrence: None)
  Receive Date: 20091001
  Receipt Date: 20090924
  Transmission Date: 20100525
  Serious: Yes (Death, Hospitalization)
  Sender: FDA-Public Use
  Company Number: ES-JNJFOC-20081101566

PATIENT
  Age: 79 Year
  Sex: Male

DRUGS (1)
  1. LEVOFLOXACIN [Suspect]
     Indication: PNEUMONIA
     Route: 042

REACTIONS (4)
  - HYPOTENSION [None]
  - PYREXIA [None]
  - TACHYCARDIA [None]
  - TREATMENT FAILURE [None]
